FAERS Safety Report 14601761 (Version 4)
Quarter: 2018Q2

REPORT INFORMATION
  Report Type: Spontaneous
  Country: JP (occurrence: JP)
  Receive Date: 20180306
  Receipt Date: 20180601
  Transmission Date: 20180711
  Serious: Yes (Death, Hospitalization, Other)
  Sender: FDA-Public Use
  Company Number: JP-009507513-1802JPN002678J

PATIENT
  Age: 76 Year
  Sex: Male
  Weight: 47 kg

DRUGS (1)
  1. KEYTRUDA [Suspect]
     Active Substance: PEMBROLIZUMAB
     Indication: LUNG ADENOCARCINOMA
     Dosage: 200 MG, Q3W
     Route: 041
     Dates: start: 20171120, end: 20180126

REACTIONS (5)
  - Tumour haemorrhage [Unknown]
  - Cardio-respiratory arrest [Unknown]
  - Haemoptysis [Fatal]
  - Loss of consciousness [Unknown]
  - Fluid retention [Unknown]

NARRATIVE: CASE EVENT DATE: 20180202
